FAERS Safety Report 7357056-6 (Version None)
Quarter: 2011Q1

REPORT INFORMATION
  Report Type: 
  Country: None (occurrence: None)
  Receive Date: 20110311
  Receipt Date: 20110311
  Transmission Date: 20110831
  Serious: No
  Sender: FDA-Public Use
  Company Number: None

PATIENT
  Sex: Male
  Weight: 80 kg

DRUGS (6)
  1. DAUNORUBICIN [Suspect]
     Dosage: 196 MG
  2. METHOTREXATE [Suspect]
     Dosage: 30 MG
  3. PEG-L- ASPARAGINASE (K-H) [Suspect]
     Dosage: 4430 UNIT
  4. METHYLPREDNISOLONE [Suspect]
     Dosage: 3360 MG
  5. CYTARABINE [Suspect]
     Dosage: 70 MG
  6. VINCRISTINE SULFATE [Suspect]
     Dosage: 8 MG

REACTIONS (2)
  - ALANINE AMINOTRANSFERASE INCREASED [None]
  - ASPARTATE AMINOTRANSFERASE INCREASED [None]
